FAERS Safety Report 20026880 (Version 2)
Quarter: 2021Q4

REPORT INFORMATION
  Report Type: Spontaneous
  Country: DE (occurrence: DE)
  Receive Date: 20211103
  Receipt Date: 20211123
  Transmission Date: 20220303
  Serious: Yes (Other)
  Sender: FDA-Public Use
  Company Number: DE-SUN PHARMACEUTICAL INDUSTRIES LTD-2021RR-316279

PATIENT
  Sex: Male

DRUGS (1)
  1. VALSARTAN [Suspect]
     Active Substance: VALSARTAN
     Indication: Hypertension
     Dosage: UNK
     Route: 065
     Dates: start: 2016, end: 2018

REACTIONS (2)
  - Bladder cancer [Unknown]
  - Carcinogenicity [Unknown]

NARRATIVE: CASE EVENT DATE: 20190201
